FAERS Safety Report 7007658-1 (Version None)
Quarter: 2010Q3

REPORT INFORMATION
  Report Type: 
  Country: None (occurrence: None)
  Receive Date: 20100922
  Receipt Date: 20100910
  Transmission Date: 20110219
  Serious: Yes (Other)
  Sender: FDA-Public Use
  Company Number: US-PFIZER INC-2010115419

PATIENT
  Sex: Male

DRUGS (1)
  1. GLIPIZIDE [Suspect]
     Dosage: 10 MG, UNK
     Dates: start: 20090707

REACTIONS (3)
  - BURNING SENSATION [None]
  - PRURITUS GENERALISED [None]
  - RASH [None]
